FAERS Safety Report 9814741 (Version 2)
Quarter: 2014Q1

REPORT INFORMATION
  Report Type: Spontaneous
  Country: US (occurrence: US)
  Receive Date: 20140113
  Receipt Date: 20140113
  Transmission Date: 20141002
  Serious: Yes (Hospitalization)
  Sender: FDA-Public Use
  Company Number: US-SANOFI-AVENTIS-2013SA052410

PATIENT
  Age: 58 Year
  Sex: Female
  Weight: 68.5 kg

DRUGS (10)
  1. TAXOTERE [Suspect]
     Indication: BREAST CANCER METASTATIC
     Route: 065
  2. TRASTUZUMAB [Suspect]
     Indication: BREAST CANCER METASTATIC
     Route: 065
  3. PERTUZUMAB [Suspect]
     Indication: BREAST CANCER METASTATIC
     Route: 065
  4. CEFEPIME [Concomitant]
     Route: 065
  5. LEVAQUIN [Concomitant]
     Route: 065
  6. CARVEDILOL [Concomitant]
     Route: 065
  7. LISINOPRIL [Concomitant]
     Route: 065
  8. SPIRONOLACTONE [Concomitant]
  9. LASIX [Concomitant]
  10. DIGOXIN [Concomitant]

REACTIONS (3)
  - Left ventricular dysfunction [Not Recovered/Not Resolved]
  - Febrile neutropenia [Recovered/Resolved]
  - Cardiac failure congestive [Not Recovered/Not Resolved]
